FAERS Safety Report 6190382-5 (Version None)
Quarter: 2009Q2

REPORT INFORMATION
  Report Type: 
  Country: None (occurrence: None)
  Receive Date: 20090514
  Receipt Date: 20090513
  Transmission Date: 20091009
  Serious: Yes (Hospitalization)
  Sender: FDA-Public Use
  Company Number: B0569756A

PATIENT
  Sex: Female
  Weight: 60 kg

DRUGS (9)
  1. MELPHALAN [Suspect]
     Indication: MULTIPLE MYELOMA
     Route: 042
     Dates: start: 20090128
  2. THALIDOMIDE [Suspect]
     Indication: MULTIPLE MYELOMA
     Dosage: 100MG PER DAY
     Route: 048
     Dates: start: 20090128
  3. PREDNISONE [Suspect]
     Indication: MULTIPLE MYELOMA
     Dosage: 2MGK PER DAY
     Route: 042
     Dates: start: 20090128
  4. VALACYCLOVIR HCL [Concomitant]
     Dosage: 500MG PER DAY
     Dates: start: 20090128
  5. OMEPRAZOLE [Concomitant]
     Dosage: 20MG PER DAY
     Dates: start: 20090128
  6. ACETYLSALICYLIC ACID [Concomitant]
     Dosage: 100MG PER DAY
     Dates: start: 20090128
  7. SULFAMETHOXAZOLE AND TRIMETHOPRIM [Concomitant]
  8. TRIMETHOPRIM [Concomitant]
  9. DARBOPOETIN ALFA [Concomitant]
     Dosage: 150MG PER DAY
     Route: 058
     Dates: start: 20090128

REACTIONS (4)
  - FEBRILE NEUTROPENIA [None]
  - HYPERSENSITIVITY [None]
  - LOWER RESPIRATORY TRACT INFECTION [None]
  - THROMBOCYTOPENIA [None]
